FAERS Safety Report 19644392 (Version 1)
Quarter: 2021Q3

REPORT INFORMATION
  Report Type: Spontaneous
  Country: IT (occurrence: IT)
  Receive Date: 20210801
  Receipt Date: 20210801
  Transmission Date: 20211014
  Serious: Yes (Death)
  Sender: FDA-Public Use
  Company Number: IT-JNJFOC-20210740671

PATIENT
  Sex: Female

DRUGS (3)
  1. ORAMORPH SR SUSTAINED RELEASE [Concomitant]
     Active Substance: MORPHINE SULFATE
  2. DUROGESIC [Suspect]
     Active Substance: FENTANYL
     Dosage: 25 MCG/HOUR PLUS 12 MCG/HOUR
     Route: 062
  3. DUROGESIC [Suspect]
     Active Substance: FENTANYL
     Indication: PAIN
     Dosage: DUROGESIC 25 MGR / HOUR
     Route: 062

REACTIONS (9)
  - Incorrect dose administered [Unknown]
  - Death [Fatal]
  - Drug ineffective [Unknown]
  - Pain [Unknown]
  - Fall [Unknown]
  - Skin abrasion [Unknown]
  - Product complaint [Unknown]
  - Off label use [Unknown]
  - Wrong technique in product usage process [Unknown]

NARRATIVE: CASE EVENT DATE: 202107
